FAERS Safety Report 9316763 (Version 1)
Quarter: 2013Q2

REPORT INFORMATION
  Report Type: Spontaneous
  Country: US (occurrence: None)
  Receive Date: 20130528
  Receipt Date: 20130528
  Transmission Date: 20140414
  Serious: Yes (Hospitalization, Disabling)
  Sender: FDA-Public Use
  Company Number: None

PATIENT
  Age: 68 Year
  Sex: Female
  Weight: 51.26 kg

DRUGS (1)
  1. OCTAGAM [Suspect]
     Indication: BREAST CANCER
     Dosage: 30G/600ML 30ML/H, 180ML/H MAX, IV DRIP
     Dates: start: 20130313, end: 20130313

REACTIONS (2)
  - Dizziness [None]
  - Dizziness [None]
